FAERS Safety Report 22115332 (Version 1)
Quarter: 2023Q1

REPORT INFORMATION
  Report Type: Other
  Country: None (occurrence: US)
  Receive Date: 20230320
  Receipt Date: 20230320
  Transmission Date: 20230418
  Serious: Yes (Hospitalization, Other)
  Sender: FDA-Public Use
  Company Number: US-Nova Laboratories Limited-2139273

PATIENT
  Age: 58 Year
  Sex: Male

DRUGS (8)
  1. PURIXAN [Suspect]
     Active Substance: MERCAPTOPURINE
     Indication: B precursor type acute leukaemia
  2. VINCRISTINE [Suspect]
     Active Substance: VINCRISTINE
  3. DEXAMETHASONE [Suspect]
     Active Substance: DEXAMETHASONE
  4. METHOTREXATE [Suspect]
     Active Substance: METHOTREXATE
  5. CYCLOPHOSPHAMIDE [Concomitant]
     Active Substance: CYCLOPHOSPHAMIDE
  6. DOXORUBICIN [Concomitant]
     Active Substance: DOXORUBICIN
  7. CYTARABINE [Concomitant]
     Active Substance: CYTARABINE
  8. RITUXIMAB [Concomitant]
     Active Substance: RITUXIMAB

REACTIONS (8)
  - Cytomegalovirus infection [Recovered/Resolved]
  - Pyrexia [Unknown]
  - Chills [Unknown]
  - Diarrhoea [Recovered/Resolved]
  - Adrenal mass [Unknown]
  - Splenic lesion [Unknown]
  - Cough [Unknown]
  - Hepatic lesion [Unknown]
